FAERS Safety Report 4308451-0 (Version None)
Quarter: 2004Q1

REPORT INFORMATION
  Report Type: 
  Country: None (occurrence: None)
  Receive Date: 20040225
  Receipt Date: 20030131
  Transmission Date: 20041129
  Serious: Yes (Other)
  Sender: FDA-Public Use
  Company Number: WAES 0302USA00189

PATIENT
  Age: 75 Year
  Sex: Female
  Weight: 71.2147 kg

DRUGS (10)
  1. ZOCOR [Suspect]
     Dosage: 20 MG/ DAILY/ PO
     Route: 048
     Dates: start: 20000601, end: 20020701
  2. CELEBREX [Concomitant]
  3. DOVONEX [Concomitant]
  4. FOSAMAX [Concomitant]
  5. MIRALAX [Concomitant]
  6. NEXIUM [Concomitant]
  7. SYNTHROID [Concomitant]
  8. AMITRIPTYLINE HCL [Concomitant]
  9. CLORAZEPATE DIPOTASSIUM [Concomitant]
  10. SPIRONOLACTONE [Concomitant]

REACTIONS (2)
  - ALANINE AMINOTRANSFERASE INCREASED [None]
  - ASPARTATE AMINOTRANSFERASE INCREASED [None]
